FAERS Safety Report 12717451 (Version 2)
Quarter: 2016Q3

REPORT INFORMATION
  Report Type: Spontaneous
  Country: GB (occurrence: GB)
  Receive Date: 20160906
  Receipt Date: 20160920
  Transmission Date: 20161109
  Serious: Yes (Disabling)
  Sender: FDA-Public Use
  Company Number: GB-SUN PHARMACEUTICAL INDUSTRIES LTD-2016RR-123176

PATIENT
  Age: 18 Year
  Sex: Male

DRUGS (4)
  1. ACETYLCYSTEINE. [Concomitant]
     Active Substance: ACETYLCYSTEINE
     Indication: PRODUCT USED FOR UNKNOWN INDICATION
     Dosage: UNK
     Route: 065
  2. ISOTRETINOIN [Suspect]
     Active Substance: ISOTRETINOIN
     Indication: ROSACEA
     Dosage: 40 MG, QD
     Route: 065
     Dates: start: 201601
  3. PROBIOTIC [Concomitant]
     Active Substance: PROBIOTICS NOS
     Indication: ILL-DEFINED DISORDER
     Dosage: UNK, QD
     Route: 065
  4. ISOTRETINOIN [Suspect]
     Active Substance: ISOTRETINOIN
     Indication: ROSACEA
     Dosage: 60 MG, QD
     Route: 065
     Dates: end: 201605

REACTIONS (11)
  - Lip dry [Recovering/Resolving]
  - Dry eye [Not Recovered/Not Resolved]
  - Eye pain [Unknown]
  - Meibomian gland dysfunction [Unknown]
  - Hyperhidrosis [Recovering/Resolving]
  - Hyperaesthesia [Recovering/Resolving]
  - Conjunctival hyperaemia [Unknown]
  - Vital dye staining cornea present [Unknown]
  - Dry skin [Recovering/Resolving]
  - Hyperhidrosis [Not Recovered/Not Resolved]
  - Conjunctival disorder [Not Recovered/Not Resolved]
